FAERS Safety Report 18115270 (Version 2)
Quarter: 2020Q3

REPORT INFORMATION
  Report Type: Spontaneous
  Country: US (occurrence: US)
  Receive Date: 20200805
  Receipt Date: 20200810
  Transmission Date: 20201103
  Serious: No
  Sender: FDA-Public Use
  Company Number: US-ALLERGAN-1943505US

PATIENT
  Sex: Female

DRUGS (1)
  1. CITALOPRAM HYDROBROMIDE ? BP [Suspect]
     Active Substance: CITALOPRAM HYDROBROMIDE
     Indication: BACK PAIN
     Dosage: 10 MG, QD
     Route: 065
     Dates: start: 20190520, end: 20190809

REACTIONS (3)
  - Hypersensitivity [Recovered/Resolved]
  - Diarrhoea [Recovered/Resolved]
  - Off label use [Unknown]
